FAERS Safety Report 13506087 (Version 1)
Quarter: 2017Q2

REPORT INFORMATION
  Report Type: Spontaneous
  Country: US (occurrence: US)
  Receive Date: 20170502
  Receipt Date: 20170502
  Transmission Date: 20170830
  Serious: No
  Sender: FDA-Public Use
  Company Number: US-ROCHE-1204750

PATIENT
  Age: 61 Year
  Sex: Female

DRUGS (2)
  1. AVASTIN [Suspect]
     Active Substance: BEVACIZUMAB
     Indication: NEOVASCULAR AGE-RELATED MACULAR DEGENERATION
     Route: 031
  2. AVASTIN [Suspect]
     Active Substance: BEVACIZUMAB
     Route: 031

REACTIONS (3)
  - Eye pain [Not Recovered/Not Resolved]
  - Crying [Recovered/Resolved]
  - Injection site pain [Not Recovered/Not Resolved]
